FAERS Safety Report 7018078-8 (Version None)
Quarter: 2010Q3

REPORT INFORMATION
  Report Type: 
  Country: None (occurrence: None)
  Receive Date: 20100927
  Receipt Date: 20100927
  Transmission Date: 20110219
  Serious: Yes (Other)
  Sender: FDA-Public Use
  Company Number: None

PATIENT
  Age: 21 Year
  Sex: Male
  Weight: 79.3795 kg

DRUGS (1)
  1. CHANTIX [Suspect]
     Indication: NICOTINE DEPENDENCE
     Dosage: ONE PILL DAILY PO
     Route: 048
     Dates: start: 20100313, end: 20100528

REACTIONS (8)
  - AGGRESSION [None]
  - IMPRISONMENT [None]
  - MENTAL DISORDER [None]
  - NIGHTMARE [None]
  - PHYSICAL ASSAULT [None]
  - SELF-INJURIOUS IDEATION [None]
  - SUICIDAL IDEATION [None]
  - VIOLENCE-RELATED SYMPTOM [None]
